FAERS Safety Report 21399604 (Version 1)
Quarter: 2022Q4

REPORT INFORMATION
  Report Type: Spontaneous
  Country: GB (occurrence: GB)
  Receive Date: 20221001
  Receipt Date: 20221001
  Transmission Date: 20230113
  Serious: Yes (Other)
  Sender: FDA-Public Use
  Company Number: GB-MHRA-MED-202209202232423030-YZTJD

PATIENT
  Age: 30 Year
  Sex: Female

DRUGS (2)
  1. MIRTAZAPINE [Suspect]
     Active Substance: MIRTAZAPINE
     Indication: Depression
     Dosage: 15 MILLIGRAM DAILY; AT NIGHT;UNIT DOSE : 15 MG, FREQUENCY ; 1 , FREQUENCY TIME : 1 DAYS, THERAPY DUR
     Route: 065
     Dates: start: 20220904, end: 20220920
  2. SERTRALINE [Concomitant]
     Active Substance: SERTRALINE HYDROCHLORIDE
     Indication: Depression
     Dosage: THERAPY DURATION : 30 DAYS
     Dates: start: 20220801, end: 20220831

REACTIONS (1)
  - Rash pruritic [Not Recovered/Not Resolved]

NARRATIVE: CASE EVENT DATE: 20220919
